FAERS Safety Report 10069367 (Version 2)
Quarter: 2014Q2

REPORT INFORMATION
  Report Type: Spontaneous
  Country: US (occurrence: US)
  Receive Date: 20140410
  Receipt Date: 20140425
  Transmission Date: 20141212
  Serious: Yes (Other)
  Sender: FDA-Public Use
  Company Number: US-009507513-1404USA004474

PATIENT
  Age: 11 Year
  Sex: Female

DRUGS (4)
  1. TEMOZOLOMIDE [Suspect]
     Indication: NEPHROBLASTOMA
     Dosage: 100MG/M2/DOSE ORALLY ON DAYS 1-5
     Route: 048
  2. VINCRISTINE SULFATE [Suspect]
     Indication: NEPHROBLASTOMA
     Dosage: 1.5 MG/M2/DOSE (2 MG MAXIMUM) ON DAYS 1 AND 8
     Route: 042
  3. IRINOTECAN HYDROCHLORIDE [Suspect]
     Indication: NEPHROBLASTOMA
     Dosage: 50 MG/M2/DAY, DAYS 1-5
     Route: 042
  4. BEVACIZUMAB [Suspect]
     Indication: NEPHROBLASTOMA
     Dosage: 15 MG/KG/DAY INTRAVENOUSLY ON DAY 1
     Route: 042

REACTIONS (5)
  - Packed red blood cell transfusion [Unknown]
  - Nausea [Unknown]
  - Vomiting [Unknown]
  - Weight decreased [Unknown]
  - Diarrhoea [Unknown]
